FAERS Safety Report 12167991 (Version 6)
Quarter: 2016Q4

REPORT INFORMATION
  Report Type: Spontaneous
  Country: US (occurrence: US)
  Receive Date: 20160310
  Receipt Date: 20161103
  Transmission Date: 20170207
  Serious: Yes (Other)
  Sender: FDA-Public Use
  Company Number: US-TEVA-640288USA

PATIENT
  Age: 41 Year
  Sex: Female

DRUGS (1)
  1. ZECUITY [Suspect]
     Active Substance: SUMATRIPTAN SUCCINATE
     Indication: MIGRAINE
     Dosage: 6.5 MG/4 HOURS
     Route: 062
     Dates: start: 20160127, end: 20160127

REACTIONS (21)
  - Chemical injury [Recovered/Resolved]
  - Application site erythema [Recovered/Resolved]
  - Scab [Recovered/Resolved]
  - Application site urticaria [Recovered/Resolved]
  - Application site scar [Recovered/Resolved]
  - Application site pain [Recovered/Resolved]
  - Application site rash [Recovered/Resolved]
  - Application site dryness [Recovered/Resolved]
  - Product leakage [Unknown]
  - Application site warmth [Recovered/Resolved]
  - Application site vesicles [Recovered/Resolved]
  - Application site burn [Recovered/Resolved]
  - Pruritus [Recovered/Resolved]
  - Application site erosion [Recovered/Resolved]
  - Application site papules [Recovered/Resolved]
  - Application site exfoliation [Recovered/Resolved]
  - Application site discolouration [Recovered/Resolved]
  - Application site paraesthesia [Recovered/Resolved]
  - Device battery issue [Unknown]
  - Application site irritation [Recovered/Resolved]
  - Application site pain [Recovered/Resolved]

NARRATIVE: CASE EVENT DATE: 201601
